FAERS Safety Report 6627678-6 (Version None)
Quarter: 2010Q1

REPORT INFORMATION
  Report Type: 
  Country: None (occurrence: None)
  Receive Date: 20100311
  Receipt Date: 20100225
  Transmission Date: 20100710
  Serious: Yes (Hospitalization, Other)
  Sender: FDA-Public Use
  Company Number: NL-MEDIMMUNE-MEDI-0010682

PATIENT
  Sex: Male
  Weight: 7.4 kg

DRUGS (2)
  1. SYNAGIS [Suspect]
     Route: 030
     Dates: start: 20090915, end: 20091230
  2. SYNAGIS [Suspect]
     Route: 030
     Dates: start: 20100129

REACTIONS (7)
  - DEAFNESS [None]
  - HEADACHE [None]
  - HYPOACUSIS [None]
  - MENINGITIS BACTERIAL [None]
  - NASOPHARYNGITIS [None]
  - OTITIS MEDIA [None]
  - PARAESTHESIA [None]
